FAERS Safety Report 14244723 (Version 2)
Quarter: 2017Q4

REPORT INFORMATION
  Report Type: Report from Study
  Country: AU (occurrence: AU)
  Receive Date: 20171201
  Receipt Date: 20171204
  Transmission Date: 20180321
  Serious: Yes (Hospitalization)
  Sender: FDA-Public Use
  Company Number: AU-TEVA-2017-AU-827689

PATIENT

DRUGS (3)
  1. METFORMIN [Interacting]
     Active Substance: METFORMIN HYDROCHLORIDE
     Route: 065
  2. CLOPIDOGREL [Suspect]
     Active Substance: CLOPIDOGREL BISULFATE
     Route: 065
  3. INSULIN [Interacting]
     Active Substance: INSULIN NOS
     Route: 065

REACTIONS (3)
  - Haemorrhage [Unknown]
  - Hypoglycaemia [Unknown]
  - Drug interaction [Unknown]
